FAERS Safety Report 8424454-9 (Version None)
Quarter: 2012Q2

REPORT INFORMATION
  Report Type: 
  Country: None (occurrence: None)
  Receive Date: 20120610
  Receipt Date: 20120326
  Transmission Date: 20120825
  Serious: No
  Sender: FDA-Public Use
  Company Number: US-ALLERGAN-1204314US

PATIENT
  Age: 89 Year
  Sex: Female

DRUGS (6)
  1. FML FORTE [Suspect]
     Indication: EYE DISCHARGE
  2. RESTASIS [Suspect]
     Indication: DRY EYE
     Dosage: 2 GTT, BID
     Route: 047
     Dates: start: 20120312
  3. RESTASIS [Suspect]
     Indication: EYE PAIN
  4. FML FORTE [Suspect]
     Indication: EYE PAIN
  5. RESTASIS [Suspect]
     Indication: EYE DISCHARGE
  6. FML FORTE [Suspect]
     Indication: EYE INFECTION
     Dosage: 2 GTT, BID
     Route: 047
     Dates: start: 20120312

REACTIONS (4)
  - WRONG TECHNIQUE IN DRUG USAGE PROCESS [None]
  - EYE PAIN [None]
  - EYE DISCHARGE [None]
  - VISION BLURRED [None]
